FAERS Safety Report 7138889-8 (Version None)
Quarter: 2010Q4

REPORT INFORMATION
  Report Type: 
  Country: None (occurrence: None)
  Receive Date: 20101206
  Receipt Date: 20100223
  Transmission Date: 20110411
  Serious: No
  Sender: FDA-Public Use
  Company Number: US-ABBOTT-09P-163-0615251-00

PATIENT
  Age: 3 Week
  Sex: Male

DRUGS (1)
  1. OMNICEF [Suspect]
     Indication: ESCHERICHIA INFECTION
     Dosage: PHARMACIST DID NOT HAVE THE DOSE OR START DATES
     Route: 048

REACTIONS (1)
  - EXPIRED DRUG ADMINISTERED [None]
